FAERS Safety Report 7747717-9 (Version None)
Quarter: 2011Q3

REPORT INFORMATION
  Report Type: 
  Country: None (occurrence: None)
  Receive Date: 20110913
  Receipt Date: 20110905
  Transmission Date: 20111222
  Serious: Yes (Other)
  Sender: FDA-Public Use
  Company Number: PHHY2011TR80372

PATIENT
  Sex: Female

DRUGS (1)
  1. GLUKOFEN [Suspect]
     Indication: INSULIN RESISTANCE
     Dosage: 1000 MG, DAILY
     Route: 048

REACTIONS (2)
  - HERPES ZOSTER [None]
  - DIARRHOEA [None]
